FAERS Safety Report 20458698 (Version 1)
Quarter: 2022Q1

REPORT INFORMATION
  Report Type: Report from Study
  Country: FR (occurrence: FR)
  Receive Date: 20220211
  Receipt Date: 20220211
  Transmission Date: 20220423
  Serious: Yes (Hospitalization)
  Sender: FDA-Public Use
  Company Number: FR-SERVIER-S21009800

PATIENT

DRUGS (8)
  1. PEGASPARGASE [Suspect]
     Active Substance: PEGASPARGASE
     Indication: Acute lymphocytic leukaemia
     Dosage: 2425 IU ON D15 AND D43
     Route: 042
     Dates: start: 20210430, end: 20210528
  2. VINCRISTINE [Suspect]
     Active Substance: VINCRISTINE
     Indication: Acute lymphocytic leukaemia
     Dosage: 1.4 MG ON D15, D22, D43, AND D50
     Route: 042
     Dates: start: 20210430, end: 20210604
  3. CYCLOPHOSPHAMIDE [Suspect]
     Active Substance: CYCLOPHOSPHAMIDE
     Indication: Acute lymphocytic leukaemia
     Dosage: 970 MG ON D1 AND  D29
     Route: 042
     Dates: start: 20210416, end: 20210514
  4. CYTARABINE [Suspect]
     Active Substance: CYTARABINE
     Indication: Acute lymphocytic leukaemia
     Dosage: 70 MG ON D3 TO D6, D10 TO D13, D31 TO D34, ^D UNREADABLE DATE^
     Route: 042
     Dates: start: 20210419, end: 20210527
  5. CYTARABINE [Suspect]
     Active Substance: CYTARABINE
     Dosage: 30 MG ON D3, D16, D31, D46
     Route: 037
     Dates: start: 20210419, end: 20210531
  6. MERCAPTOPURINE [Suspect]
     Active Substance: MERCAPTOPURINE
     Indication: Acute lymphocytic leukaemia
     Dosage: 58 MG ON D1 TO D14, D29 TO D42
     Route: 048
     Dates: start: 20210430, end: 20210527
  7. TN UNSPECIFIED [Concomitant]
     Indication: Acute lymphocytic leukaemia
     Dosage: 12 MG ON D3, D16, D31, D46
     Route: 037
     Dates: start: 20210419, end: 20210531
  8. TN UNSPECIFIED [Concomitant]
     Indication: Acute lymphocytic leukaemia
     Dosage: 15 MG ON D3, D16, D31, D46
     Route: 037
     Dates: start: 20210419, end: 20210531

REACTIONS (1)
  - Candida infection [Recovering/Resolving]

NARRATIVE: CASE EVENT DATE: 20210607
